FAERS Safety Report 9158545 (Version 1)
Quarter: 2013Q1

REPORT INFORMATION
  Report Type: Spontaneous
  Country: GB (occurrence: GB)
  Receive Date: 20130312
  Receipt Date: 20130312
  Transmission Date: 20140127
  Serious: Yes (Hospitalization, Other)
  Sender: FDA-Public Use
  Company Number: GB-PFIZER INC-2013059700

PATIENT
  Age: 72 Year
  Sex: Female

DRUGS (1)
  1. CHAMPIX [Suspect]
     Indication: SMOKING CESSATION THERAPY

REACTIONS (9)
  - Gastric ulcer [Recovering/Resolving]
  - Abdominal pain [Recovering/Resolving]
  - Abdominal distension [Recovering/Resolving]
  - Hyperchlorhydria [Recovering/Resolving]
  - Local swelling [Unknown]
  - Pain [Unknown]
  - Anxiety [Unknown]
  - Constipation [Unknown]
  - Ear pain [Unknown]
